FAERS Safety Report 10024017 (Version 1)
Quarter: 2014Q1

REPORT INFORMATION
  Report Type: Spontaneous
  Country: US (occurrence: US)
  Receive Date: 20140320
  Receipt Date: 20140320
  Transmission Date: 20141002
  Serious: No
  Sender: FDA-Public Use
  Company Number: US-BAYER-2014-041722

PATIENT
  Age: 77 Year
  Sex: Female
  Weight: 50.79 kg

DRUGS (3)
  1. ALEVE CAPLET [Suspect]
     Indication: BACK PAIN
     Dosage: 2 DF, PRN
     Route: 048
     Dates: end: 201403
  2. SYNTHROID [Concomitant]
  3. OMEPRAZOLE [Concomitant]

REACTIONS (1)
  - Drug ineffective [None]
